FAERS Safety Report 4277931-9 (Version None)
Quarter: 2004Q1

REPORT INFORMATION
  Report Type: 
  Country: None (occurrence: None)
  Receive Date: 20040122
  Receipt Date: 20040122
  Transmission Date: 20041129
  Serious: Yes (Other)
  Sender: FDA-Public Use
  Company Number: None

PATIENT
  Age: 27 Year
  Sex: Female
  Weight: 104.3273 kg

DRUGS (2)
  1. FASTIN [Suspect]
     Indication: OVERWEIGHT
     Dosage: 3 X A DAY
     Dates: start: 19870901, end: 19871201
  2. TENUATE DOSPAN [Suspect]

REACTIONS (3)
  - ARRHYTHMIA [None]
  - DYSPNOEA [None]
  - HEART RATE INCREASED [None]
